FAERS Safety Report 20548966 (Version 2)
Quarter: 2022Q1

REPORT INFORMATION
  Report Type: Other
  Country: US (occurrence: None)
  Receive Date: 20220303
  Receipt Date: 20220314
  Transmission Date: 20220423
  Serious: Yes (Death)
  Sender: FDA-Public Use
  Company Number: US-ROCHE-2628836

PATIENT
  Age: 78 Year
  Sex: Male

DRUGS (2)
  1. RITUXAN [Suspect]
     Active Substance: RITUXIMAB
     Indication: Monoclonal gammopathy
     Dosage: VIAL?DATE OF TREATMENT: 11/DEC/2019 (1000 MG), 11/DEC/2019, 09/JUN/2021.
     Route: 042
     Dates: start: 20191211, end: 20210609
  2. RITUXAN [Suspect]
     Active Substance: RITUXIMAB
     Indication: Chronic inflammatory demyelinating polyradiculoneuropathy

REACTIONS (1)
  - Death [Fatal]

NARRATIVE: CASE EVENT DATE: 20220201
